FAERS Safety Report 6193354-X (Version None)
Quarter: 2009Q2

REPORT INFORMATION
  Report Type: 
  Country: None (occurrence: None)
  Receive Date: 20090514
  Receipt Date: 20090514
  Transmission Date: 20091009
  Serious: Yes (Other)
  Sender: FDA-Public Use
  Company Number: None

PATIENT
  Age: 31 Year
  Sex: Male
  Weight: 60 kg

DRUGS (1)
  1. INFLIMAB REMICADE SCHERING PLOUGH [Suspect]
     Indication: PSORIASIS
     Dosage: 300 MG 4HOURS IV BOLUS
     Route: 041
     Dates: start: 20081106, end: 20090218

REACTIONS (5)
  - CHILLS [None]
  - JAUNDICE [None]
  - MALAISE [None]
  - PYREXIA [None]
  - RHINITIS [None]
